FAERS Safety Report 5367962-X (Version None)
Quarter: 2007Q2

REPORT INFORMATION
  Report Type: 
  Country: None (occurrence: None)
  Receive Date: 20070622
  Receipt Date: 20070611
  Transmission Date: 20071010
  Serious: Yes (Other)
  Sender: FDA-Public Use
  Company Number: CN-PFIZER INC-2007042679

PATIENT
  Sex: Male

DRUGS (1)
  1. PHARMORUBICIN [Suspect]
     Indication: BLADDER CANCER
     Route: 042
     Dates: start: 20070101, end: 20070101

REACTIONS (1)
  - EXCESSIVE GRANULATION TISSUE [None]
